FAERS Safety Report 4587131-0 (Version None)
Quarter: 2005Q1

REPORT INFORMATION
  Report Type: 
  Country: None (occurrence: None)
  Receive Date: 20050218
  Receipt Date: 20050204
  Transmission Date: 20050727
  Serious: Yes (Death, Other)
  Sender: FDA-Public Use
  Company Number: 2004-04-1281

PATIENT
  Age: 83 Year
  Sex: Male
  Weight: 71 kg

DRUGS (4)
  1. ASPIRIN [Suspect]
     Indication: ILL-DEFINED DISORDER
     Dosage: 325MG PER DAY
     Route: 048
     Dates: start: 20040324, end: 20040325
  2. HEPARIN [Suspect]
     Indication: THROMBOSIS PROPHYLAXIS
     Route: 042
     Dates: start: 20040324, end: 20040326
  3. CLOPIDOGREL [Suspect]
     Indication: ILL-DEFINED DISORDER
     Dosage: 75MG PER DAY
     Route: 048
     Dates: start: 20040324, end: 20040325
  4. INTEGRILIN [Suspect]
     Indication: THROMBOSIS PROPHYLAXIS
     Route: 042
     Dates: start: 20040325, end: 20040326

REACTIONS (9)
  - ACTIVATED PARTIAL THROMBOPLASTIN TIME PROLONGED [None]
  - COAGULATION TIME PROLONGED [None]
  - CONVULSION [None]
  - CREATININE RENAL CLEARANCE DECREASED [None]
  - HAEMATEMESIS [None]
  - HAEMATURIA [None]
  - HAEMORRHAGE INTRACRANIAL [None]
  - NEUROLOGICAL SYMPTOM [None]
  - PLATELET COUNT DECREASED [None]
